FAERS Safety Report 5167363-3 (Version None)
Quarter: 2006Q4

REPORT INFORMATION
  Report Type: 
  Country: None (occurrence: None)
  Receive Date: 20061130
  Receipt Date: 20061117
  Transmission Date: 20070319
  Serious: Yes (Other)
  Sender: FDA-Public Use
  Company Number: 2006144055

PATIENT
  Age: 51 Year
  Sex: Male

DRUGS (2)
  1. VFEND [Suspect]
     Indication: PNEUMONIA FUNGAL
     Dosage: SEE IMAGE
     Route: 042
     Dates: start: 20061114, end: 20061114
  2. VFEND [Suspect]
     Indication: PNEUMONIA FUNGAL
     Dosage: SEE IMAGE
     Route: 042
     Dates: start: 20061115

REACTIONS (3)
  - CONDITION AGGRAVATED [None]
  - INTERSTITIAL LUNG DISEASE [None]
  - LUNG DISORDER [None]
